FAERS Safety Report 9641064 (Version 1)
Quarter: 2013Q4

REPORT INFORMATION
  Report Type: Spontaneous
  Country: None (occurrence: US)
  Receive Date: 20131023
  Receipt Date: 20131023
  Transmission Date: 20140711
  Serious: Yes (Hospitalization)
  Sender: FDA-Public Use
  Company Number: US-TEVA-426296USA

PATIENT
  Sex: 0

DRUGS (1)
  1. SYNRIBO [Suspect]

REACTIONS (1)
  - Pyrexia [Unknown]
